FAERS Safety Report 7194353-1 (Version None)
Quarter: 2010Q4

REPORT INFORMATION
  Report Type: 
  Country: None (occurrence: None)
  Receive Date: 20101223
  Receipt Date: 20101213
  Transmission Date: 20110411
  Serious: Yes (Hospitalization)
  Sender: FDA-Public Use
  Company Number: MX-ELI_LILLY_AND_COMPANY-MX201010006726

PATIENT
  Age: 65 Year
  Sex: Male

DRUGS (3)
  1. ZYPREXA [Suspect]
     Indication: DELIRIUM
     Dosage: 10 MG, DAILY (1/D)
  2. METOCLOPRAMIDE [Concomitant]
  3. MIDAZOLAM HCL [Concomitant]
     Indication: ENDOSCOPY GASTROINTESTINAL

REACTIONS (7)
  - DYSPHAGIA [None]
  - GAIT DISTURBANCE [None]
  - HAEMORRHAGIC STROKE [None]
  - MOVEMENT DISORDER [None]
  - MUSCLE RIGIDITY [None]
  - SALIVARY HYPERSECRETION [None]
  - SPEECH DISORDER [None]
